FAERS Safety Report 6333971-7 (Version None)
Quarter: 2009Q3

REPORT INFORMATION
  Report Type: 
  Country: None (occurrence: None)
  Receive Date: 20090829
  Receipt Date: 20090706
  Transmission Date: 20100115
  Serious: No
  Sender: FDA-Public Use
  Company Number: US-ABBOTT-09P-163-0583934-00

PATIENT
  Sex: Male

DRUGS (4)
  1. SIMCOR [Suspect]
     Indication: DRUG USE FOR UNKNOWN INDICATION
     Dates: start: 20090701
  2. UNSPECIFIED MEDICATION [Concomitant]
     Indication: HYPERTENSION
  3. UNSPECIFIED MEDICATION [Concomitant]
     Indication: DIABETES MELLITUS
  4. ASPIRIN [Concomitant]
     Indication: DRUG USE FOR UNKNOWN INDICATION

REACTIONS (1)
  - FLUSHING [None]
